FAERS Safety Report 5500673-6 (Version None)
Quarter: 2007Q4

REPORT INFORMATION
  Report Type: 
  Country: None (occurrence: None)
  Receive Date: 20071022
  Receipt Date: 20070702
  Transmission Date: 20080405
  Serious: No
  Sender: FDA-Public Use
  Company Number: SPV1-2007-03530

PATIENT
  Age: 34 Year
  Sex: Female
  Weight: 73 kg

DRUGS (2)
  1. VYVANSE [Suspect]
     Indication: ATTENTION DEFICIT/HYPERACTIVITY DISORDER
     Dosage: 50 MG, 1X/DAY:QD 8:30 A.M., ORAL
     Route: 048
     Dates: start: 20070628
  2. LAMICTAL [Concomitant]

REACTIONS (4)
  - EYE IRRITATION [None]
  - FATIGUE [None]
  - OFF LABEL USE [None]
  - SOMNOLENCE [None]
